FAERS Safety Report 22153936 (Version 2)
Quarter: 2023Q2

REPORT INFORMATION
  Report Type: Spontaneous
  Country: CZ (occurrence: CZ)
  Receive Date: 20230330
  Receipt Date: 20230416
  Transmission Date: 20230722
  Serious: Yes (Death, Hospitalization, Other)
  Sender: FDA-Public Use
  Company Number: CZ-CELLTRION INC.-2023CZ006312

PATIENT

DRUGS (7)
  1. RITUXIMAB [Suspect]
     Active Substance: RITUXIMAB
     Indication: Blastic plasmacytoid dendritic cell neoplasia
     Dosage: CYCLIC (8X R-CHOEP)
  2. ETOPOSIDE [Suspect]
     Active Substance: ETOPOSIDE
     Indication: Blastic plasmacytoid dendritic cell neoplasia
     Dosage: CYCLIC (8X R-CHOEP)
  3. CYCLOPHOSPHAMIDE [Suspect]
     Active Substance: CYCLOPHOSPHAMIDE
     Indication: Blastic plasmacytoid dendritic cell neoplasia
     Dosage: CYCLIC (8X R-CHOEP)
  4. PREDNISONE [Suspect]
     Active Substance: PREDNISONE
     Indication: Blastic plasmacytoid dendritic cell neoplasia
     Dosage: 100 MG QD, PREPHASE WITH CORTICOIDS WAS INITIATED WITH PREDNISONE AT 100 MG PER DAY FOR FIVE DAYS
  5. PREDNISONE [Suspect]
     Active Substance: PREDNISONE
     Dosage: CYCLIC (8X R-CHOEP)
  6. DOXORUBICIN HYDROCHLORIDE [Suspect]
     Active Substance: DOXORUBICIN HYDROCHLORIDE
     Indication: Blastic plasmacytoid dendritic cell neoplasia
     Dosage: CYCLIC (8X R-CHOEP)
  7. VINCRISTINE [Suspect]
     Active Substance: VINCRISTINE
     Indication: Blastic plasmacytoid dendritic cell neoplasia
     Dosage: CYCLIC (8X R-CHOEP)

REACTIONS (11)
  - Cardiac arrest [Fatal]
  - Optic ischaemic neuropathy [Unknown]
  - Cytopenia [Unknown]
  - Febrile neutropenia [Unknown]
  - Pneumonia [Unknown]
  - Neutropenia [Unknown]
  - Thrombocytopenia [Unknown]
  - Giant cell arteritis [Unknown]
  - Haemorrhoidal haemorrhage [Unknown]
  - Anaemia [Unknown]
  - Off label use [Unknown]
